FAERS Safety Report 11926414 (Version 2)
Quarter: 2016Q1

REPORT INFORMATION
  Report Type: Spontaneous
  Country: US (occurrence: US)
  Receive Date: 20160119
  Receipt Date: 20160120
  Transmission Date: 20160526
  Serious: Yes (Hospitalization, Other)
  Sender: FDA-Public Use
  Company Number: US-DRREDDYS-USA/USA/16/0055337

PATIENT
  Age: 3 Year
  Sex: Female

DRUGS (7)
  1. VINCRISTINE [Concomitant]
     Active Substance: VINCRISTINE
     Indication: BONE GIANT CELL TUMOUR BENIGN
     Route: 065
  2. CYCLOPHOSPHAMIDE. [Concomitant]
     Active Substance: CYCLOPHOSPHAMIDE
     Indication: BONE GIANT CELL TUMOUR BENIGN
     Route: 065
  3. BEVACIZUMAB [Concomitant]
     Active Substance: BEVACIZUMAB
     Indication: BONE GIANT CELL TUMOUR BENIGN
     Route: 065
  4. PAMIDRONATE [Concomitant]
     Active Substance: PAMIDRONATE DISODIUM
     Indication: BONE GIANT CELL TUMOUR BENIGN
     Route: 065
  5. ZOLEDRONIC ACID. [Suspect]
     Active Substance: ZOLEDRONIC ACID
     Indication: BONE GIANT CELL TUMOUR BENIGN
     Route: 065
  6. INTERFERON [Concomitant]
     Active Substance: INTERFERON
     Indication: BONE GIANT CELL TUMOUR BENIGN
     Route: 065
  7. DOXORUBICIN [Concomitant]
     Active Substance: DOXORUBICIN
     Indication: BONE GIANT CELL TUMOUR BENIGN
     Route: 065

REACTIONS (6)
  - Hypophosphataemia [Unknown]
  - Pneumonia [Unknown]
  - Hyperkalaemia [Unknown]
  - Disease progression [Unknown]
  - Influenza [Unknown]
  - Hypocalcaemia [Unknown]
